FAERS Safety Report 9198458 (Version 1)
Quarter: 2013Q1

REPORT INFORMATION
  Report Type: Spontaneous
  Country: TW (occurrence: TW)
  Receive Date: 20130329
  Receipt Date: 20130329
  Transmission Date: 20140127
  Serious: Yes (Other)
  Sender: FDA-Public Use
  Company Number: TW-ACCORD-016941

PATIENT
  Age: 17 Year
  Sex: Female

DRUGS (2)
  1. QUETIAPINE FUMARATE [Suspect]
     Indication: PSYCHOTIC DISORDER
     Dosage: INITIALLY STARTED WITH 600 MG/DAY.
  2. ESTAZOLAM [Concomitant]
     Dosage: 1-2 MG/DAY

REACTIONS (1)
  - Kleptomania [Recovered/Resolved]
